FAERS Safety Report 7490918 (Version 5)
Quarter: 2013Q4

REPORT INFORMATION
  Report Type: Spontaneous
  Country: US (occurrence: US)
  Receive Date: 20100720
  Receipt Date: 20131122
  Transmission Date: 20140711
  Serious: Yes (Life-Threatening, Hospitalization, Disabling)
  Sender: FDA-Public Use
  Company Number: US-BAYER-201027703NA

PATIENT
  Age: 28 Year
  Sex: Female
  Weight: 72.56 kg

DRUGS (1)
  1. MIRENA [Suspect]
     Indication: CONTRACEPTION
     Dosage: 20 MCG/24HR, CONT
     Route: 015
     Dates: start: 20100125, end: 20100818

REACTIONS (10)
  - Uterine perforation [None]
  - Uterine disorder [None]
  - Device dislocation [None]
  - Vaginal haemorrhage [None]
  - Vaginal haemorrhage [None]
  - Uterine injury [None]
  - Abdominal pain [None]
  - Anxiety [None]
  - Anhedonia [None]
  - Emotional distress [None]
